FAERS Safety Report 5829836-7 (Version None)
Quarter: 2008Q3

REPORT INFORMATION
  Report Type: 
  Country: None (occurrence: None)
  Receive Date: 20080801
  Receipt Date: 20080723
  Transmission Date: 20090109
  Serious: Yes (Death, Hospitalization)
  Sender: FDA-Public Use
  Company Number: JP-BAYER-200811652BYL

PATIENT
  Age: 67 Year
  Sex: Male

DRUGS (2)
  1. NEXAVAR [Suspect]
     Indication: RENAL CELL CARCINOMA
     Route: 048
     Dates: start: 20080528, end: 20080603
  2. NEXAVAR [Suspect]
     Route: 048
     Dates: start: 20080604, end: 20080716

REACTIONS (5)
  - DEATH [None]
  - DIARRHOEA [None]
  - DYSPHONIA [None]
  - MECHANICAL ILEUS [None]
  - SEPSIS [None]
